FAERS Safety Report 8024476-6 (Version None)
Quarter: 2011Q4

REPORT INFORMATION
  Report Type: 
  Country: None (occurrence: None)
  Receive Date: 20111130
  Receipt Date: 20110629
  Transmission Date: 20120403
  Serious: Yes (Other)
  Sender: FDA-Public Use
  Company Number: 331255

PATIENT
  Age: 76 Year
  Sex: Male
  Weight: 99.8 kg

DRUGS (2)
  1. LANTUS [Concomitant]
  2. NOVOLOG [Suspect]
     Indication: TYPE 2 DIABETES MELLITUS
     Dosage: SLIDING SCALE TID BEFORE MEALS, SUBCUTANEOUS
     Route: 058
     Dates: start: 20110101, end: 20110301

REACTIONS (3)
  - MALAISE [None]
  - HYPOGLYCAEMIC SEIZURE [None]
  - HEADACHE [None]
